FAERS Safety Report 4551702-8 (Version None)
Quarter: 2005Q1

REPORT INFORMATION
  Report Type: 
  Country: None (occurrence: None)
  Receive Date: 20050111
  Receipt Date: 20041230
  Transmission Date: 20050727
  Serious: No
  Sender: FDA-Public Use
  Company Number: 2005UW00251

PATIENT
  Age: 53 Year
  Sex: Female

DRUGS (5)
  1. ATENOLOL [Suspect]
  2. IMIPRAM TAB [Concomitant]
  3. BROMAZEPAM [Concomitant]
  4. ACETAMINOPHEN [Concomitant]
  5. VENLAFAXINA [Concomitant]

REACTIONS (3)
  - SOMNOLENCE [None]
  - SUICIDE ATTEMPT [None]
  - UNRESPONSIVE TO VERBAL STIMULI [None]
